FAERS Safety Report 4825360-9 (Version None)
Quarter: 2005Q4

REPORT INFORMATION
  Report Type: 
  Country: None (occurrence: None)
  Receive Date: 20051111
  Receipt Date: 20051030
  Transmission Date: 20060501
  Serious: Yes (Hospitalization)
  Sender: FDA-Public Use
  Company Number: US-ROCHE-423119

PATIENT
  Age: 38 Year
  Sex: Female

DRUGS (13)
  1. PEGASYS [Suspect]
     Dosage: ROUTE REPORTED AS INJ. DOSAGE REGIMEN REPORTED AS EVERY WEEK.
     Route: 050
     Dates: start: 20050514, end: 20051015
  2. PEGASYS [Suspect]
     Dosage: ROUTE REPORTED AS INJ. DOSAGE REGIMEN REPORTED AS EVERY WEEK. START DATE REPORTED AS 31 OCTOBER 200+
     Route: 050
  3. COPEGUS [Suspect]
     Dosage: DOSAGE REGIMEN REPORTED AS 2 AM AND 3 PM.
     Route: 048
     Dates: start: 20050514
  4. LEVOXYL [Concomitant]
     Indication: HYPOTHYROIDISM
     Dosage: DOSAGE REGIMEN REPORTED AS EVERY DAY.
     Route: 048
  5. ULTRAM [Concomitant]
     Indication: PAIN
     Route: 048
  6. IBUPROFEN [Concomitant]
     Indication: PAIN
     Route: 048
  7. LISINOPRIL [Concomitant]
     Indication: HEART RATE INCREASED
     Route: 048
  8. TOPROL-XL [Concomitant]
     Indication: HEART RATE INCREASED
     Route: 048
  9. GABAPENTIN [Concomitant]
     Route: 048
  10. REGLAN [Concomitant]
     Indication: NAUSEA
  11. ZOFRAN [Concomitant]
     Indication: NAUSEA
  12. PHENERGAN [Concomitant]
     Indication: NAUSEA
  13. REMERON [Concomitant]
     Dates: start: 20050615

REACTIONS (12)
  - ABDOMINAL PAIN [None]
  - BLOOD CALCIUM DECREASED [None]
  - DEHYDRATION [None]
  - HEART RATE INCREASED [None]
  - INFUSION SITE REACTION [None]
  - PRESCRIBED OVERDOSE [None]
  - RENAL DISORDER [None]
  - RHEUMATOID ARTHRITIS [None]
  - TOOTH ABSCESS [None]
  - VISION BLURRED [None]
  - WEIGHT FLUCTUATION [None]
  - WHITE BLOOD CELL COUNT DECREASED [None]
